FAERS Safety Report 5955941-0 (Version None)
Quarter: 2008Q4

REPORT INFORMATION
  Report Type: 
  Country: None (occurrence: None)
  Receive Date: 20081112
  Receipt Date: 20081027
  Transmission Date: 20090506
  Serious: Yes (Hospitalization, Disabling)
  Sender: FDA-Public Use
  Company Number: 2008SP002677

PATIENT
  Age: 69 Year
  Sex: Female
  Weight: 122.5 kg

DRUGS (9)
  1. XOPENEX [Suspect]
     Indication: DYSPNOEA
     Dosage: PRN; INHALATION
     Route: 055
     Dates: start: 20050101
  2. AMBIEN [Concomitant]
  3. LEXAPRO [Concomitant]
  4. LOPRESSOR [Concomitant]
  5. ASPIRIN [Concomitant]
  6. PRILOSEC [Concomitant]
  7. TYLENOL (CAPLET) [Concomitant]
  8. POTASSIUM CHLORIDE [Concomitant]
  9. PREV MEDS [Concomitant]

REACTIONS (6)
  - BLOOD PRESSURE DECREASED [None]
  - EXPIRED DRUG ADMINISTERED [None]
  - FALL [None]
  - LOWER LIMB FRACTURE [None]
  - SYNCOPE [None]
  - TYPE 2 DIABETES MELLITUS [None]
